FAERS Safety Report 15630681 (Version 4)
Quarter: 2019Q4

REPORT INFORMATION
  Report Type: Report from Study
  Country: None (occurrence: US)
  Receive Date: 20181119
  Receipt Date: 20191124
  Transmission Date: 20200122
  Serious: Yes (Hospitalization, Other)
  Sender: FDA-Public Use
  Company Number: US-ABBVIE-18K-163-2557045-00

PATIENT
  Age: 70 Year
  Sex: Male

DRUGS (2)
  1. HUMIRA [Suspect]
     Active Substance: ADALIMUMAB
     Indication: PSORIASIS
     Route: 058
     Dates: end: 20181012
  2. HUMIRA [Suspect]
     Active Substance: ADALIMUMAB
     Route: 058
     Dates: start: 20181120

REACTIONS (11)
  - Fatigue [Unknown]
  - Dyspnoea [Unknown]
  - Arterial occlusive disease [Recovering/Resolving]
  - Coronary artery bypass [Recovering/Resolving]
  - Back pain [Not Recovered/Not Resolved]
  - Heart sounds abnormal [Recovered/Resolved]
  - Hiccups [Recovered/Resolved]
  - Cough [Unknown]
  - Weight increased [Unknown]
  - Insomnia [Unknown]
  - Musculoskeletal pain [Unknown]

NARRATIVE: CASE EVENT DATE: 2018
